FAERS Safety Report 19299028 (Version 2)
Quarter: 2023Q4

REPORT INFORMATION
  Report Type: Report from Study
  Country: KR (occurrence: KR)
  Receive Date: 20210524
  Receipt Date: 20231214
  Transmission Date: 20240109
  Serious: Yes (Death, Hospitalization)
  Sender: FDA-Public Use
  Company Number: KR-BAYER-2021-014350

PATIENT
  Age: 44 Year
  Sex: Male

DRUGS (4)
  1. STIVARGA [Suspect]
     Active Substance: REGORAFENIB
     Indication: Colorectal cancer metastatic
     Dosage: UNK
     Route: 048
     Dates: start: 20200911
  2. STIVARGA [Suspect]
     Active Substance: REGORAFENIB
     Indication: Colon cancer stage IV
     Dosage: UNK
     Dates: start: 20200920
  3. STIVARGA [Suspect]
     Active Substance: REGORAFENIB
     Indication: Metastases to liver
  4. STIVARGA [Suspect]
     Active Substance: REGORAFENIB
     Indication: Metastases to bone

REACTIONS (3)
  - Colon cancer stage IV [Fatal]
  - Hospitalisation [None]
  - Off label use [None]

NARRATIVE: CASE EVENT DATE: 20200911
